FAERS Safety Report 11176769 (Version 1)
Quarter: 2015Q2

REPORT INFORMATION
  Report Type: Spontaneous
  Country: US (occurrence: None)
  Receive Date: 20150609
  Receipt Date: 20150609
  Transmission Date: 20150821
  Serious: Yes (Other)
  Sender: FDA-Public Use
  Company Number: None

PATIENT
  Sex: Female

DRUGS (1)
  1. CAPECITABINE. [Suspect]
     Active Substance: CAPECITABINE
     Indication: BREAST CANCER FEMALE
     Dosage: 1500 MG , 2 WEEKS OFF
     Route: 048
     Dates: start: 20150414, end: 20150605

REACTIONS (4)
  - Pain [None]
  - Drug ineffective [None]
  - Swelling [None]
  - Diarrhoea [None]
